FAERS Safety Report 22175902 (Version 2)
Quarter: 2023Q2

REPORT INFORMATION
  Report Type: Other
  Country: CA (occurrence: None)
  Receive Date: 20230405
  Receipt Date: 20230412
  Transmission Date: 20230721
  Serious: No
  Sender: FDA-Public Use
  Company Number: CA-ROCHE-2805650

PATIENT
  Sex: Male

DRUGS (1)
  1. OCREVUS [Suspect]
     Active Substance: OCRELIZUMAB
     Indication: Relapsing-remitting multiple sclerosis
     Dosage: THEN 600 MG EVERY 6 MONTH
     Route: 042
     Dates: start: 20200204

REACTIONS (6)
  - Pain [Not Recovered/Not Resolved]
  - Fatigue [Unknown]
  - Cold sweat [Unknown]
  - Vomiting [Unknown]
  - Influenza [Recovered/Resolved]
  - Movement disorder [Unknown]
